FAERS Safety Report 11194158 (Version 1)
Quarter: 2015Q2

REPORT INFORMATION
  Report Type: Spontaneous
  Country: US (occurrence: US)
  Receive Date: 20150616
  Receipt Date: 20150616
  Transmission Date: 20150821
  Serious: No
  Sender: FDA-Public Use
  Company Number: US-LPDUSPRD-20150085

PATIENT
  Sex: Male

DRUGS (1)
  1. CYANOCOBALAMIN INJECTION, USP (0031-25) [Suspect]
     Active Substance: CYANOCOBALAMIN
     Dosage: NOT PROVIDED (APPROX 3 INJ)
     Route: 051
     Dates: start: 2012, end: 2012

REACTIONS (2)
  - Injection site pain [Recovered/Resolved]
  - Injection site mass [Not Recovered/Not Resolved]

NARRATIVE: CASE EVENT DATE: 2012
